FAERS Safety Report 22745613 (Version 2)
Quarter: 2024Q3

REPORT INFORMATION
  Report Type: Report from Study
  Country: CA (occurrence: CA)
  Receive Date: 20230725
  Receipt Date: 20240827
  Transmission Date: 20241017
  Serious: Yes (Other)
  Sender: SANDOZ
  Company Number: CA-SANDOZ-SDZ2023CA004778

PATIENT
  Sex: Male

DRUGS (1)
  1. HYRIMOZ [Suspect]
     Active Substance: ADALIMUMAB-ADAZ
     Indication: Ankylosing spondylitis
     Dosage: 40MG;EVERY TEN DAYS
     Route: 058
     Dates: start: 20221007

REACTIONS (3)
  - Epididymitis [Unknown]
  - Pharyngitis [Unknown]
  - Off label use [Unknown]
